FAERS Safety Report 8162552-8 (Version None)
Quarter: 2012Q1

REPORT INFORMATION
  Report Type: 
  Country: None (occurrence: None)
  Receive Date: 20120221
  Receipt Date: 20120206
  Transmission Date: 20120608
  Serious: Yes (Death, Hospitalization)
  Sender: FDA-Public Use
  Company Number: UTC-015087

PATIENT
  Age: 67 Year
  Sex: Female
  Weight: 68.18 kg

DRUGS (3)
  1. COUMADIN [Concomitant]
  2. REMODULIN [Suspect]
     Indication: COR PULMONALE CHRONIC
     Dosage: 54.72 UG/KG (0.038 UG/KG, 1 IN 1 MIN), INTRAVENOUS
     Route: 042
     Dates: start: 20061229
  3. ADCIRCA [Concomitant]

REACTIONS (3)
  - HAEMORRHAGE [None]
  - PLATELET AGGREGATION [None]
  - HYPOTENSION [None]
